FAERS Safety Report 21930838 (Version 1)
Quarter: 2023Q1

REPORT INFORMATION
  Report Type: Spontaneous
  Country: US (occurrence: None)
  Receive Date: 20230130
  Receipt Date: 20230130
  Transmission Date: 20230418
  Serious: Yes (Death)
  Sender: FDA-Public Use
  Company Number: None

PATIENT
  Age: 75 Year
  Sex: Male
  Weight: 81.6 kg

DRUGS (1)
  1. APIXABAN [Suspect]
     Active Substance: APIXABAN
     Indication: Atrial fibrillation
     Dosage: FREQUENCY : TWICE A DAY;?
     Route: 048
     Dates: start: 20220104, end: 20220225

REACTIONS (7)
  - Drug monitoring procedure incorrectly performed [None]
  - Hypotension [None]
  - Haemoglobin decreased [None]
  - Weight increased [None]
  - Blood creatinine increased [None]
  - Coronary arterial stent insertion [None]
  - Fluid retention [None]

NARRATIVE: CASE EVENT DATE: 20220225
